FAERS Safety Report 25032928 (Version 1)
Quarter: 2025Q1

REPORT INFORMATION
  Report Type: Spontaneous
  Country: JP (occurrence: JP)
  Receive Date: 20250303
  Receipt Date: 20250303
  Transmission Date: 20250408
  Serious: Yes (Life-Threatening, Other)
  Sender: MERCK SHARP & DOHME LLC
  Company Number: JP-MSD-M2024-51820

PATIENT
  Age: 6 Decade

DRUGS (3)
  1. KEYTRUDA [Suspect]
     Active Substance: PEMBROLIZUMAB
     Indication: Hypopharyngeal cancer
     Dosage: DOSE DESCRIPTION : 200 MILLIGRAM, Q3W?DAILY DOSE : 9.4 MILLIGRAM?REGIMEN DOSE : 200  MILLIGRAM
     Route: 041
     Dates: start: 202407, end: 202412
  2. FLUOROURACIL [Concomitant]
     Active Substance: FLUOROURACIL
     Indication: Hypopharyngeal cancer
     Route: 065
     Dates: start: 202407, end: 202412
  3. CISPLATIN [Concomitant]
     Active Substance: CISPLATIN
     Indication: Hypopharyngeal cancer
     Route: 065
     Dates: start: 202407, end: 202412

REACTIONS (3)
  - Appendicitis perforated [Recovered/Resolved]
  - Malignant neoplasm progression [Unknown]
  - Peritonitis [Unknown]

NARRATIVE: CASE EVENT DATE: 20241201
